FAERS Safety Report 23171915 (Version 2)
Quarter: 2024Q2

REPORT INFORMATION
  Report Type: Spontaneous
  Country: US (occurrence: US)
  Receive Date: 20231110
  Receipt Date: 20240411
  Transmission Date: 20240716
  Serious: Yes (Death)
  Sender: FDA-Public Use
  Company Number: US-Accord-389311

PATIENT
  Age: 60 Year
  Sex: Male
  Weight: 112.8 kg

DRUGS (18)
  1. CARBOPLATIN [Suspect]
     Active Substance: CARBOPLATIN
     Indication: Squamous cell carcinoma of lung
     Dosage: 6 AUC, 1Q3W
     Route: 042
     Dates: start: 20230911, end: 20230911
  2. PACLITAXEL [Suspect]
     Active Substance: PACLITAXEL
     Indication: Squamous cell carcinoma of lung
     Dosage: 1Q3W
     Route: 042
     Dates: start: 20230911, end: 20230911
  3. PEMBROLIZUMAB [Concomitant]
     Active Substance: PEMBROLIZUMAB
     Indication: Squamous cell carcinoma of lung
     Dosage: 1Q3W
     Route: 042
     Dates: start: 20230911, end: 20230911
  4. ACETAMINOPHEN [Concomitant]
     Active Substance: ACETAMINOPHEN
     Dates: start: 2023
  5. ALBUTEROL [Concomitant]
     Active Substance: ALBUTEROL
     Dates: start: 20230726
  6. ALPRAZOLAM [Concomitant]
     Active Substance: ALPRAZOLAM
     Dates: start: 20230613
  7. ATORVASTATIN [Concomitant]
     Active Substance: ATORVASTATIN
     Dates: start: 20230613
  8. BISACODYL [Concomitant]
     Active Substance: BISACODYL
     Dates: start: 20230915
  9. DIPHENHYDRAMINE [Concomitant]
     Active Substance: DIPHENHYDRAMINE
     Dates: start: 20230911, end: 20230911
  10. FAMOTIDINE [Concomitant]
     Active Substance: FAMOTIDINE
     Dates: start: 20230911, end: 20230911
  11. FOSAPREPITANT [Concomitant]
     Active Substance: FOSAPREPITANT
     Dates: start: 20230911, end: 20230911
  12. GABAPENTIN [Concomitant]
     Active Substance: GABAPENTIN
     Dates: start: 20230915
  13. GUAIFENESIN [Concomitant]
     Active Substance: GUAIFENESIN
     Dates: start: 20230822
  14. LEVOFLOXACIN [Concomitant]
     Active Substance: LEVOFLOXACIN
     Dates: start: 20230905, end: 20230910
  15. LOSARTAN [Concomitant]
     Active Substance: LOSARTAN
     Dates: start: 20230613
  16. VITAMINS [Concomitant]
     Active Substance: VITAMINS
     Dates: start: 2023
  17. PALONOSETRON HYDROCHLORIDE [Concomitant]
     Active Substance: PALONOSETRON HYDROCHLORIDE
     Dates: start: 20230911, end: 20230911
  18. SENNOSIDES [Concomitant]
     Active Substance: SENNOSIDES
     Dates: start: 2023

REACTIONS (1)
  - Haemorrhage [Fatal]

NARRATIVE: CASE EVENT DATE: 20230924
